FAERS Safety Report 9279665 (Version 1)
Quarter: 2013Q2

REPORT INFORMATION
  Report Type: Spontaneous
  Country: US (occurrence: US)
  Receive Date: 20130509
  Receipt Date: 20130509
  Transmission Date: 20140414
  Serious: Yes (Other)
  Sender: FDA-Public Use
  Company Number: US-ROCHE-1219150

PATIENT
  Sex: Male
  Weight: 99.43 kg

DRUGS (6)
  1. PEGASYS [Suspect]
     Route: 058
     Dates: start: 20130304, end: 20130327
  2. RIBAVIRIN [Concomitant]
     Indication: HEPATITIS
     Route: 048
     Dates: start: 20130304, end: 20130327
  3. TRUVADA [Concomitant]
     Route: 065
  4. REYATAZ [Concomitant]
     Route: 065
  5. NORVIR [Concomitant]
     Route: 065
  6. PEGASYS [Suspect]
     Indication: HEPATITIS
     Route: 058
     Dates: start: 20130226

REACTIONS (5)
  - Thinking abnormal [Recovered/Resolved]
  - Fatigue [Recovered/Resolved]
  - Decreased interest [Recovered/Resolved]
  - Decreased appetite [Recovered/Resolved]
  - Insomnia [Unknown]
